FAERS Safety Report 24152737 (Version 7)
Quarter: 2025Q2

REPORT INFORMATION
  Report Type: Spontaneous
  Country: US (occurrence: US)
  Receive Date: 20240730
  Receipt Date: 20250517
  Transmission Date: 20250717
  Serious: Yes (Other)
  Sender: SANOFI AVENTIS
  Company Number: US-SA-SAC20240725000147

PATIENT
  Age: 21 Year
  Sex: Female

DRUGS (2)
  1. DUPIXENT [Suspect]
     Active Substance: DUPILUMAB
     Indication: Eczema
     Route: 058
     Dates: start: 20240615, end: 20240615
  2. DUPIXENT [Suspect]
     Active Substance: DUPILUMAB
     Indication: Dyshidrotic eczema
     Dosage: 300 MG, QOW
     Route: 058
     Dates: start: 202406, end: 202412

REACTIONS (19)
  - Pneumonia [Recovered/Resolved]
  - Tinea pedis [Recovered/Resolved]
  - Dyshidrotic eczema [Unknown]
  - Hyperhidrosis [Not Recovered/Not Resolved]
  - Condition aggravated [Unknown]
  - Rebound effect [Unknown]
  - Dyshidrotic eczema [Unknown]
  - Drug ineffective for unapproved indication [Unknown]
  - Myalgia [Recovered/Resolved]
  - Rash [Recovered/Resolved]
  - Eczema [Not Recovered/Not Resolved]
  - Rash erythematous [Unknown]
  - Pruritus [Not Recovered/Not Resolved]
  - Skin exfoliation [Not Recovered/Not Resolved]
  - Dry skin [Not Recovered/Not Resolved]
  - Skin burning sensation [Unknown]
  - Drug ineffective [Unknown]
  - Product use in unapproved indication [Unknown]
  - Product dose omission in error [Unknown]

NARRATIVE: CASE EVENT DATE: 20240101
